FAERS Safety Report 7675286-0 (Version None)
Quarter: 2011Q3

REPORT INFORMATION
  Report Type: 
  Country: None (occurrence: None)
  Receive Date: 20110810
  Receipt Date: 20110803
  Transmission Date: 20111222
  Serious: Yes (Hospitalization)
  Sender: FDA-Public Use
  Company Number: US-EISAI INC-E3810-04844-SPO-US

PATIENT
  Sex: Female

DRUGS (2)
  1. ACIPHEX [Suspect]
     Indication: PHARYNGOESOPHAGEAL DIVERTICULUM
     Route: 048
     Dates: start: 20070101, end: 20110701
  2. ACIPHEX [Suspect]

REACTIONS (5)
  - SPINAL FRACTURE [None]
  - ROAD TRAFFIC ACCIDENT [None]
  - CHEST PAIN [None]
  - HIP FRACTURE [None]
  - THROAT IRRITATION [None]
